FAERS Safety Report 10235037 (Version 1)
Quarter: 2014Q2

REPORT INFORMATION
  Report Type: Spontaneous
  Country: IT (occurrence: IT)
  Receive Date: 20140613
  Receipt Date: 20140613
  Transmission Date: 20141212
  Serious: Yes (Death, Other)
  Sender: FDA-Public Use
  Company Number: PHHY2014IT070018

PATIENT
  Age: 52 Year
  Sex: Male

DRUGS (5)
  1. IMATINIB [Suspect]
     Indication: GASTROINTESTINAL STROMAL TUMOUR
     Dosage: 400 MG, PER DAY
  2. IMATINIB [Suspect]
     Dosage: 800 MG, PER DAY
     Dates: end: 201108
  3. NILOTINIB [Suspect]
     Indication: GASTROINTESTINAL STROMAL TUMOUR
     Dosage: 800 MG, PER DAY
  4. SUNITINIB [Suspect]
     Dosage: 50 MG, PER DAY
  5. SUNITINIB [Suspect]
     Dosage: 37.5 MG, PER DAY

REACTIONS (7)
  - Death [Fatal]
  - Gastrointestinal stromal tumour [Unknown]
  - Abdominal mass [Unknown]
  - Malignant neoplasm progression [Unknown]
  - Neoplasm recurrence [Unknown]
  - General physical health deterioration [Unknown]
  - Drug intolerance [Unknown]
